FAERS Safety Report 10286411 (Version 1)
Quarter: 2014Q3

REPORT INFORMATION
  Report Type: Spontaneous
  Country: US (occurrence: None)
  Receive Date: 20140707
  Receipt Date: 20140707
  Transmission Date: 20150326
  Serious: No
  Sender: FDA-Public Use
  Company Number: None

PATIENT
  Age: 17 Year
  Sex: Female

DRUGS (1)
  1. NEUPOGEN [Suspect]
     Active Substance: FILGRASTIM
     Indication: HODGKIN^S DISEASE
     Dosage: 300 UG DAILY X 14 DAYS SC
     Route: 058
     Dates: start: 20140314

REACTIONS (1)
  - Confusional state [None]

NARRATIVE: CASE EVENT DATE: 20140702
